FAERS Safety Report 10396260 (Version 1)
Quarter: 2014Q3

REPORT INFORMATION
  Report Type: Spontaneous
  Country: US (occurrence: None)
  Receive Date: 20140818
  Receipt Date: 20140818
  Transmission Date: 20150326
  Serious: No
  Sender: FDA-Public Use
  Company Number: None

PATIENT
  Age: 63 Year
  Sex: Female

DRUGS (12)
  1. OLYSIO [Suspect]
     Active Substance: SIMEPREVIR
     Indication: HEPATITIS C
     Route: 048
     Dates: start: 20140724
  2. CLOTRIMAZOLE AND BETAMETHASONE DIPROPIONATE [Concomitant]
     Active Substance: BETAMETHASONE\BETAMETHASONE DIPROPIONATE\CLOTRIMAZOLE
  3. PROAIR HFA [Concomitant]
     Active Substance: ALBUTEROL SULFATE
  4. SYMBICORT [Concomitant]
     Active Substance: BUDESONIDE\FORMOTEROL FUMARATE DIHYDRATE
  5. CHLORHEXIDINE [Concomitant]
     Active Substance: CHLORHEXIDINE
  6. HYDROCODONE/ACETAMINOPHEN [Concomitant]
     Active Substance: ACETAMINOPHEN\HYDROCODONE
  7. SOVALDI [Suspect]
     Active Substance: SOFOSBUVIR
     Indication: HEPATITIS C
     Route: 048
     Dates: start: 20140724
  8. METRONIDAZOLE. [Concomitant]
     Active Substance: METRONIDAZOLE
  9. CLOBETASOL [Concomitant]
     Active Substance: CLOBETASOL
  10. FLUCONAZOLE. [Concomitant]
     Active Substance: FLUCONAZOLE
  11. PREDNISONE. [Concomitant]
     Active Substance: PREDNISONE
  12. CEPHALEXIN. [Concomitant]
     Active Substance: CEPHALEXIN

REACTIONS (3)
  - Constipation [None]
  - Headache [None]
  - Insomnia [None]

NARRATIVE: CASE EVENT DATE: 20140727
